FAERS Safety Report 14659593 (Version 2)
Quarter: 2018Q2

REPORT INFORMATION
  Report Type: Spontaneous
  Country: US (occurrence: US)
  Receive Date: 20180320
  Receipt Date: 20180604
  Transmission Date: 20180711
  Serious: No
  Sender: FDA-Public Use
  Company Number: US-PFIZER INC-2018111798

PATIENT
  Age: 53 Year
  Sex: Female
  Weight: 78.5 kg

DRUGS (6)
  1. LYRICA [Suspect]
     Active Substance: PREGABALIN
     Dosage: 100 MG, 3X/DAY
     Route: 048
     Dates: start: 201711
  2. SERTRALINE [Concomitant]
     Active Substance: SERTRALINE HYDROCHLORIDE
     Indication: PAIN
     Dosage: 50 MG, 1X/DAY
     Route: 048
     Dates: start: 201801
  3. LYRICA [Suspect]
     Active Substance: PREGABALIN
     Dosage: 100 (UNIT UNSPECIFIED), UNK
  4. LYRICA [Suspect]
     Active Substance: PREGABALIN
     Dosage: 150 (UNIT UNSPECIFIED), UNK
  5. LYRICA [Suspect]
     Active Substance: PREGABALIN
     Indication: NERVE INJURY
     Dosage: 450 MG, DAILY (9 OF THE 50 MG CAPSULES; 3 CAPSULES EVERY 6 HOURS)
     Route: 048
  6. LYRICA [Suspect]
     Active Substance: PREGABALIN
     Dosage: 300 (UNIT UNSPECIFIED), UNK

REACTIONS (3)
  - Drug effect incomplete [Not Recovered/Not Resolved]
  - Expired product administered [Unknown]
  - Asthenia [Not Recovered/Not Resolved]

NARRATIVE: CASE EVENT DATE: 201711
